FAERS Safety Report 12158062 (Version 1)
Quarter: 2016Q1

REPORT INFORMATION
  Report Type: Spontaneous
  Country: US (occurrence: US)
  Receive Date: 20160308
  Receipt Date: 20160308
  Transmission Date: 20160526
  Serious: No
  Sender: FDA-Public Use
  Company Number: US-JNJFOC-20150103379

PATIENT
  Age: 77 Year
  Sex: Male

DRUGS (13)
  1. LISINOPRIL. [Concomitant]
     Active Substance: LISINOPRIL
     Route: 048
  2. IMBRUVICA [Suspect]
     Active Substance: IBRUTINIB
     Indication: MANTLE CELL LYMPHOMA
     Route: 048
     Dates: start: 20141223
  3. ASPIRIN. [Concomitant]
     Active Substance: ASPIRIN
     Route: 048
  4. VIAGRA [Concomitant]
     Active Substance: SILDENAFIL CITRATE
     Route: 048
  5. IMBRUVICA [Suspect]
     Active Substance: IBRUTINIB
     Indication: MANTLE CELL LYMPHOMA
     Route: 048
     Dates: start: 20141003, end: 20141206
  6. FISH OIL [Concomitant]
     Active Substance: FISH OIL
     Route: 048
  7. ATORVASTATIN CALCIUM. [Concomitant]
     Active Substance: ATORVASTATIN CALCIUM
     Route: 048
  8. ACICLOVIR [Concomitant]
     Active Substance: ACYCLOVIR
     Route: 048
  9. METFORMIN [Concomitant]
     Active Substance: METFORMIN HYDROCHLORIDE
     Route: 048
  10. SPIRONOLACTONE. [Concomitant]
     Active Substance: SPIRONOLACTONE
     Route: 048
  11. CARVEDILOL. [Concomitant]
     Active Substance: CARVEDILOL
     Route: 048
  12. DIGOXIN. [Concomitant]
     Active Substance: DIGOXIN
     Route: 048
  13. FAMCICLOVIR. [Concomitant]
     Active Substance: FAMCICLOVIR
     Route: 048

REACTIONS (22)
  - Hepatotoxicity [Recovering/Resolving]
  - Disease progression [Recovering/Resolving]
  - Blood bilirubin increased [Recovering/Resolving]
  - Inappropriate schedule of drug administration [Recovered/Resolved]
  - Nausea [Recovered/Resolved]
  - Dizziness [Recovered/Resolved]
  - Constipation [Recovered/Resolved]
  - Nocturia [Unknown]
  - Muscle spasms [Unknown]
  - Balance disorder [Recovering/Resolving]
  - Fatigue [Recovering/Resolving]
  - Vomiting [Recovered/Resolved]
  - Skin lesion [Not Recovered/Not Resolved]
  - Weight decreased [Unknown]
  - Tinnitus [Unknown]
  - Diarrhoea [Not Recovered/Not Resolved]
  - Nocturia [Not Recovered/Not Resolved]
  - Blood uric acid increased [Unknown]
  - Pollakiuria [Unknown]
  - Muscular weakness [Unknown]
  - Arthralgia [Unknown]
  - Blood creatinine increased [Unknown]

NARRATIVE: CASE EVENT DATE: 2014
